FAERS Safety Report 5303027-0 (Version None)
Quarter: 2007Q2

REPORT INFORMATION
  Report Type: 
  Country: None (occurrence: None)
  Receive Date: 20070413
  Receipt Date: 20070328
  Transmission Date: 20071010
  Serious: Yes (Hospitalization, Disabling, Other)
  Sender: FDA-Public Use
  Company Number: 07042078

PATIENT
  Age: 83 Year
  Sex: Female

DRUGS (2)
  1. WARFARIN SODIUM [Suspect]
     Indication: ATRIAL FIBRILLATION
     Dosage: 4MG, QD; ORAL
     Route: 048
  2. LOVENOX [Concomitant]

REACTIONS (3)
  - DISORDER OF ORBIT [None]
  - ECCHYMOSIS [None]
  - SKIN NECROSIS [None]
